FAERS Safety Report 14851226 (Version 3)
Quarter: 2018Q2

REPORT INFORMATION
  Report Type: Report from Study
  Country: FR (occurrence: FR)
  Receive Date: 20180507
  Receipt Date: 20180529
  Transmission Date: 20180711
  Serious: Yes (Hospitalization)
  Sender: FDA-Public Use
  Company Number: FR-ROCHE-2117053

PATIENT
  Age: 55 Year
  Sex: Male
  Weight: 95 kg

DRUGS (2)
  1. OBINUTUZUMAB. [Suspect]
     Active Substance: OBINUTUZUMAB
     Indication: MANTLE CELL LYMPHOMA
     Dosage: C1D1?LAST DOSE OF 1000 MG BEFORE SAE ON: 01/MAR/2018?TEMPORARILY DISCONTINUED ON: 26/APR/2018
     Route: 042
     Dates: start: 20161130
  2. OBINUTUZUMAB. [Suspect]
     Active Substance: OBINUTUZUMAB
     Route: 042
     Dates: start: 20180502

REACTIONS (1)
  - Staphylococcal infection [Recovered/Resolved with Sequelae]

NARRATIVE: CASE EVENT DATE: 20180427
